FAERS Safety Report 6469551-2 (Version None)
Quarter: 2009Q4

REPORT INFORMATION
  Report Type: 
  Country: None (occurrence: None)
  Receive Date: 20091203
  Receipt Date: 20091125
  Transmission Date: 20100525
  Serious: Yes (Other)
  Sender: FDA-Public Use
  Company Number: FR-ABBOTT-09P-056-0610926-00

PATIENT
  Age: 40 Year
  Sex: Female

DRUGS (2)
  1. HUMIRA [Suspect]
     Indication: ANKYLOSING SPONDYLITIS
  2. ANTI-INFLAMMATORY [Concomitant]
     Indication: ANKYLOSING SPONDYLITIS

REACTIONS (2)
  - HEPATITIS [None]
  - PANCREATITIS [None]
